FAERS Safety Report 19595819 (Version 3)
Quarter: 2021Q4

REPORT INFORMATION
  Report Type: Spontaneous
  Country: DE (occurrence: DE)
  Receive Date: 20210722
  Receipt Date: 20211014
  Transmission Date: 20220303
  Serious: Yes (Other)
  Sender: FDA-Public Use
  Company Number: DE-ASTELLAS-2021US022256

PATIENT
  Sex: Female
  Weight: 52 kg

DRUGS (10)
  1. GILTERITINIB [Interacting]
     Active Substance: GILTERITINIB
     Indication: Acute myeloid leukaemia
     Dosage: 120 MG, IN MORNING WITH MEALS (PAUSED FOR 1 DAY)
     Route: 048
     Dates: start: 20210518
  2. GILTERITINIB [Interacting]
     Active Substance: GILTERITINIB
     Dosage: 120 MG, UNKNOWN FREQ. (PAUSED FOR 2 DAY)
     Route: 048
  3. GILTERITINIB [Interacting]
     Active Substance: GILTERITINIB
     Dosage: 120 MG, DAILY
     Route: 048
  4. PROGRAF [Interacting]
     Active Substance: TACROLIMUS
     Indication: Stem cell transplant
     Dosage: 2 X 1 MG. 2 X 1.5 MG, 2 X 2 MG
     Route: 048
     Dates: start: 20210201, end: 20210802
  5. CYCLOSPORINE [Concomitant]
     Active Substance: CYCLOSPORINE
     Indication: Product used for unknown indication
     Dosage: UNK UNK, UNKNOWN FREQ.
     Route: 065
  6. CORTISONE [Concomitant]
     Active Substance: CORTISONE
     Indication: Product used for unknown indication
     Dosage: UNK UNK, UNKNOWN FREQ.
     Route: 065
     Dates: start: 202105
  7. VALACYCLOVIR HYDROCHLORIDE [Concomitant]
     Active Substance: VALACYCLOVIR HYDROCHLORIDE
     Indication: Product used for unknown indication
     Dosage: 500 UNK, ONCE DAILY (1-0-0)
     Route: 065
  8. SULFAMETHOXAZOLE\TRIMETHOPRIM [Concomitant]
     Active Substance: SULFAMETHOXAZOLE\TRIMETHOPRIM
     Indication: Product used for unknown indication
     Dosage: 960 UNK, THRICE WEEKLY
     Route: 065
  9. FLUCONAZOLE [Concomitant]
     Active Substance: FLUCONAZOLE
     Indication: Product used for unknown indication
     Dosage: UNK UNK, UNKNOWN FREQ.
     Route: 065
  10. PANTOPRAZOLE SODIUM [Concomitant]
     Active Substance: PANTOPRAZOLE SODIUM
     Indication: Product used for unknown indication
     Dosage: 40 MG, ONCE DAILY (1-0-0)
     Route: 065

REACTIONS (13)
  - Deafness [Recovered/Resolved]
  - Cataract [Recovered/Resolved]
  - Graft versus host disease [Unknown]
  - Hypoacusis [Recovered/Resolved]
  - Euthyroid sick syndrome [Unknown]
  - Hypertension [Unknown]
  - Vomiting [Recovered/Resolved]
  - Diarrhoea [Recovered/Resolved]
  - Visual impairment [Recovered/Resolved]
  - Product use in unapproved indication [Unknown]
  - Drug interaction [Unknown]
  - Drug intolerance [Unknown]
  - Taste disorder [Unknown]

NARRATIVE: CASE EVENT DATE: 20210501
